FAERS Safety Report 7937981 (Version 3)
Quarter: 2013Q3

REPORT INFORMATION
  Report Type: Spontaneous
  Country: US (occurrence: US)
  Receive Date: 20110510
  Receipt Date: 20130927
  Transmission Date: 20140515
  Serious: Yes (Hospitalization, Other)
  Sender: FDA-Public Use
  Company Number: US-JNJFOC-20110501273

PATIENT
  Sex: Female

DRUGS (5)
  1. LEVAQUIN [Suspect]
     Indication: ENTEROBACTER PNEUMONIA
     Route: 065
  2. VANCOMYCIN [Suspect]
     Indication: PRODUCT USED FOR UNKNOWN INDICATION
     Route: 065
  3. ZOSYN [Suspect]
     Indication: ESCHERICHIA INFECTION
     Route: 065
  4. ZOSYN [Suspect]
     Indication: ENTEROBACTER PNEUMONIA
     Route: 065
  5. CASPOFUNGIN [Suspect]
     Indication: FUNGAL INFECTION
     Route: 065

REACTIONS (6)
  - Stevens-Johnson syndrome [Unknown]
  - Toxic epidermal necrolysis [Recovered/Resolved]
  - Multi-organ failure [Unknown]
  - Nerve injury [Unknown]
  - Aphonia [Unknown]
  - Amnesia [Unknown]
